FAERS Safety Report 5199103-6 (Version None)
Quarter: 2006Q4

REPORT INFORMATION
  Report Type: 
  Country: None (occurrence: None)
  Receive Date: 20060919
  Receipt Date: 20060104
  Transmission Date: 20070319
  Serious: Yes (Other)
  Sender: FDA-Public Use
  Company Number: HQWYE255909JAN06

PATIENT
  Age: 46 Year
  Sex: Female
  Weight: 61.29 kg

DRUGS (2)
  1. ADVIL [Suspect]
     Indication: ARTHRALGIA
     Dosage: 2 CAPSULES AS NEEDED UP TO THREE TIMES  DAILY, ORAL
     Route: 048
     Dates: end: 20051201
  2. ADVIL [Suspect]
     Indication: HEADACHE
     Dosage: 2 CAPSULES AS NEEDED UP TO THREE TIMES  DAILY, ORAL
     Route: 048
     Dates: end: 20051201

REACTIONS (1)
  - ERUCTATION [None]
